FAERS Safety Report 8898514 (Version 1)
Quarter: 2012Q4

REPORT INFORMATION
  Report Type: 
  Country: US (occurrence: US)
  Receive Date: 20121108
  Receipt Date: 20121108
  Transmission Date: 20130627
  Serious: No
  Sender: FDA-Public Use
  Company Number: US-AMGEN-USASP2012024045

PATIENT
  Sex: Female

DRUGS (11)
  1. ENBREL [Suspect]
     Indication: PRODUCT USED FOR UNKNOWN INDICATION
     Dosage: 50 mg, qwk
     Route: 058
  2. METHOTREXATE [Concomitant]
     Dosage: 2.5 mg, UNK
  3. DILTIAZEM [Concomitant]
     Dosage: 120 mg, UNK
  4. LASIX                              /00032601/ [Concomitant]
     Dosage: 40 mg, UNK
  5. CRESTOR [Concomitant]
     Dosage: 10 mg, UNK
  6. FOLIC ACID [Concomitant]
     Dosage: UNK
  7. NOVOLIN [Concomitant]
     Dosage: UNK
  8. ATIVAN [Concomitant]
     Dosage: 1 mg, UNK
  9. PLAVIX [Concomitant]
     Dosage: 75 mg, UNK
  10. ASPIRIN (E.C.) [Concomitant]
     Dosage: 81 mg, UNK
  11. TYLENOL /00020001/ [Concomitant]
     Dosage: 500 mg, UNK

REACTIONS (1)
  - Injection site erythema [Unknown]
